FAERS Safety Report 12452996 (Version 1)
Quarter: 2016Q2

REPORT INFORMATION
  Report Type: Spontaneous
  Country: US (occurrence: US)
  Receive Date: 20160609
  Receipt Date: 20160609
  Transmission Date: 20160815
  Serious: Yes (Life-Threatening, Hospitalization)
  Sender: FDA-Public Use
  Company Number: US-BION-20160210

PATIENT
  Age: 30 Year
  Sex: Male

DRUGS (1)
  1. LOPERAMIDE TABLETS [Suspect]
     Active Substance: LOPERAMIDE
     Indication: DRUG WITHDRAWAL SYNDROME
     Dosage: 200 DAILY FOR THE LAST SEVEN DAYS

REACTIONS (7)
  - Pulse absent [None]
  - Ventricular tachycardia [Recovered/Resolved]
  - Intentional overdose [Recovered/Resolved]
  - Apnoea [None]
  - Ventricular arrhythmia [Recovered/Resolved]
  - Product use issue [Recovered/Resolved]
  - Refusal of treatment by patient [None]
